FAERS Safety Report 26051691 (Version 1)
Quarter: 2025Q4

REPORT INFORMATION
  Report Type: Spontaneous
  Country: US (occurrence: US)
  Receive Date: 20251117
  Receipt Date: 20251117
  Transmission Date: 20260118
  Serious: No
  Sender: ALVOGEN
  Company Number: US-ALVOGEN-2025097744

PATIENT
  Sex: Female

DRUGS (1)
  1. TERIPARATIDE [Suspect]
     Active Substance: TERIPARATIDE
     Indication: Osteoporosis
     Dosage: EXP: OCT-2025;?STRENGTH:  620MCG/2.48ML.?GTIN: 00347781652890
     Dates: start: 20250313

REACTIONS (4)
  - Product colour issue [Unknown]
  - Liquid product physical issue [Unknown]
  - Poor quality product administered [Unknown]
  - Product dose omission issue [Unknown]

NARRATIVE: CASE EVENT DATE: 20250401
